FAERS Safety Report 4439535-4 (Version None)
Quarter: 2004Q3

REPORT INFORMATION
  Report Type: 
  Country: None (occurrence: None)
  Receive Date: 20040830
  Receipt Date: 20040813
  Transmission Date: 20050211
  Serious: Yes (Life-Threatening, Hospitalization)
  Sender: FDA-Public Use
  Company Number: 04P-260-0270778-00

PATIENT
  Age: 16 Year
  Sex: Female
  Weight: 40 kg

DRUGS (1)
  1. ISOPTIN SR [Suspect]
     Indication: ACCIDENTAL OVERDOSE
     Dosage: 240 MG, 12 IN 1 ONCE, PER ORAL
     Route: 048
     Dates: start: 20040811, end: 20040811

REACTIONS (6)
  - ACCIDENTAL OVERDOSE [None]
  - ACCIDENTAL POISONING [None]
  - ATRIOVENTRICULAR BLOCK [None]
  - FEELING ABNORMAL [None]
  - THERAPEUTIC AGENT TOXICITY [None]
  - VOMITING [None]
